FAERS Safety Report 12657315 (Version 2)
Quarter: 2016Q3

REPORT INFORMATION
  Report Type: Spontaneous
  Country: CN (occurrence: CN)
  Receive Date: 20160816
  Receipt Date: 20160907
  Transmission Date: 20161109
  Serious: Yes (Death, Hospitalization, Other)
  Sender: FDA-Public Use
  Company Number: CN-SA-2016SA147882

PATIENT
  Age: 40 Year
  Sex: Male

DRUGS (19)
  1. IMIPENEM/CILASTATIN SODIUM [Suspect]
     Active Substance: CILASTATIN SODIUM\IMIPENEM
     Indication: KLEBSIELLA BACTERAEMIA
     Route: 065
  2. TIGECYCLINE. [Suspect]
     Active Substance: TIGECYCLINE
     Indication: KLEBSIELLA BACTERAEMIA
     Route: 042
  3. VORICONAZOLE. [Concomitant]
     Active Substance: VORICONAZOLE
     Indication: INFECTION
     Route: 042
  4. DEXAMETHASONE SALT NOT SPECIFIED [Suspect]
     Active Substance: DEXAMETHASONE
     Indication: T-CELL LYMPHOMA
     Route: 065
  5. MOXIFLOXACIN HYDROCHLORIDE. [Suspect]
     Active Substance: MOXIFLOXACIN HYDROCHLORIDE
     Indication: INFECTION
     Route: 042
  6. GEMCITABINE [Suspect]
     Active Substance: GEMCITABINE\GEMCITABINE HYDROCHLORIDE
     Indication: T-CELL LYMPHOMA
     Route: 065
  7. VORICONAZOLE. [Concomitant]
     Active Substance: VORICONAZOLE
     Indication: INFECTION
  8. IMIPENEM/CILASTATIN SODIUM [Concomitant]
  9. PREDNISONE. [Suspect]
     Active Substance: PREDNISONE
     Indication: T-CELL LYMPHOMA
     Route: 065
  10. CYCLOPHOSPHAMIDE. [Suspect]
     Active Substance: CYCLOPHOSPHAMIDE
     Indication: T-CELL LYMPHOMA
     Route: 065
  11. TIGECYCLINE. [Suspect]
     Active Substance: TIGECYCLINE
     Indication: KLEBSIELLA BACTERAEMIA
     Route: 042
  12. VANCOMYCIN [Suspect]
     Active Substance: VANCOMYCIN
     Indication: INFECTION
     Route: 042
  13. VINCRISTINE [Suspect]
     Active Substance: VINCRISTINE
     Indication: T-CELL LYMPHOMA
     Route: 065
  14. OXALIPLATIN. [Suspect]
     Active Substance: OXALIPLATIN
     Indication: T-CELL LYMPHOMA
     Route: 065
  15. EPIRUBICIN [Suspect]
     Active Substance: EPIRUBICIN
     Indication: T-CELL LYMPHOMA
     Route: 065
  16. SULBACTAM/CEFOPERAZONE [Suspect]
     Active Substance: CEFOPERAZONE\SULBACTAM
     Indication: INFECTION
     Route: 042
  17. FOSFOMYCIN SALT NOT SPECIFIED [Suspect]
     Active Substance: FOSFOMYCIN
     Indication: PNEUMONIA KLEBSIELLA
     Route: 042
  18. MITOXANTRONE [Suspect]
     Active Substance: MITOXANTRONE HYDROCHLORIDE
     Indication: T-CELL LYMPHOMA
     Route: 065
  19. VANCOMYCIN [Suspect]
     Active Substance: VANCOMYCIN
     Indication: INFECTION
     Route: 065

REACTIONS (9)
  - Treatment failure [Unknown]
  - Malignant neoplasm progression [Recovering/Resolving]
  - Klebsiella bacteraemia [Fatal]
  - Pyrexia [Fatal]
  - C-reactive protein increased [Fatal]
  - T-cell lymphoma [Recovering/Resolving]
  - Lymphadenopathy [Recovering/Resolving]
  - Multiple-drug resistance [Fatal]
  - Pathogen resistance [Fatal]
